FAERS Safety Report 7712166-6 (Version None)
Quarter: 2011Q3

REPORT INFORMATION
  Report Type: 
  Country: None (occurrence: None)
  Receive Date: 20110822
  Receipt Date: 20110811
  Transmission Date: 20111222
  Serious: Yes (Other)
  Sender: FDA-Public Use
  Company Number: DSA_47413_2011

PATIENT
  Sex: Male

DRUGS (4)
  1. MAXZIDE (NOT SPECIFIED) [Suspect]
     Indication: BLOOD PRESSURE ABNORMAL
     Dosage: (DF ORAL)
     Route: 048
  2. LIPITOR [Suspect]
     Indication: BLOOD CHOLESTEROL INCREASED
     Dosage: (DF ORAL)
     Route: 048
     Dates: start: 20100101, end: 20110101
  3. LIPITOR [Suspect]
  4. DILTIAZEM [Suspect]
     Indication: PRODUCT USED FOR UNKNOWN INDICATION
     Dosage: (DF ORAL)
     Route: 048

REACTIONS (3)
  - MUSCLE ATROPHY [None]
  - MYALGIA [None]
  - DRUG INTERACTION [None]
